FAERS Safety Report 18582540 (Version 1)
Quarter: 2020Q4

REPORT INFORMATION
  Report Type: Report from Study
  Country: IT (occurrence: IT)
  Receive Date: 20201205
  Receipt Date: 20201205
  Transmission Date: 20210114
  Serious: Yes (Hospitalization)
  Sender: FDA-Public Use
  Company Number: IT-ACCORD-210096

PATIENT
  Age: 41 Year
  Sex: Male
  Weight: 0 kg

DRUGS (4)
  1. VATRAN [Suspect]
     Active Substance: DIAZEPAM
     Dosage: 5 MG TABLETS
     Route: 048
     Dates: start: 20201029, end: 20201029
  2. SERTRALINE [Suspect]
     Active Substance: SERTRALINE HYDROCHLORIDE
     Route: 048
     Dates: start: 20201029, end: 20201029
  3. ALCOVER [Suspect]
     Active Substance: SODIUM OXYBATE
     Route: 048
     Dates: start: 20201029, end: 20201029
  4. LEXOTAN [Suspect]
     Active Substance: BROMAZEPAM
     Route: 048
     Dates: start: 20201029, end: 20201029

REACTIONS (2)
  - Drug abuse [Unknown]
  - Abdominal pain upper [Recovered/Resolved]

NARRATIVE: CASE EVENT DATE: 20201029
